FAERS Safety Report 6463672-6 (Version None)
Quarter: 2009Q4

REPORT INFORMATION
  Report Type: 
  Country: None (occurrence: None)
  Receive Date: 20091201
  Receipt Date: 20091125
  Transmission Date: 20100525
  Serious: Yes (Death)
  Sender: FDA-Public Use
  Company Number: PHEH2009US15824

PATIENT
  Sex: Female

DRUGS (8)
  1. EXJADE [Suspect]
     Indication: IRON METABOLISM DISORDER
     Dosage: 1000 MG, QD
     Route: 048
     Dates: start: 20091020
  2. LOPRESSOR [Concomitant]
     Dosage: 50 MG, BID
  3. LISINOPRIL [Concomitant]
     Dosage: 25 MG, UNK
  4. MAG-OX [Concomitant]
  5. VITAMIN D [Concomitant]
  6. POTASSIUM [Concomitant]
  7. CAMPTOSAR [Concomitant]
  8. CARBOPLATIN [Concomitant]

REACTIONS (2)
  - CARDIAC ARREST [None]
  - UNRESPONSIVE TO STIMULI [None]
